FAERS Safety Report 7329496-2 (Version None)
Quarter: 2011Q1

REPORT INFORMATION
  Report Type: 
  Country: None (occurrence: None)
  Receive Date: 20110303
  Receipt Date: 20110224
  Transmission Date: 20110831
  Serious: Yes (Other)
  Sender: FDA-Public Use
  Company Number: BR-PFIZER INC-BR-WYE-H15344210

PATIENT
  Age: 64 Year
  Sex: Female
  Weight: 82 kg

DRUGS (2)
  1. EFFEXOR XR [Suspect]
     Indication: PANIC DISORDER
     Dosage: 75 MG, 1X/DAY
     Route: 048
  2. RIVOTRIL [Concomitant]
     Dosage: UNK
     Dates: start: 20000101

REACTIONS (8)
  - OBSESSIVE-COMPULSIVE DISORDER [None]
  - AGORAPHOBIA [None]
  - ANXIETY [None]
  - DEPRESSION [None]
  - TREMOR [None]
  - WEIGHT DECREASED [None]
  - EXAGGERATED STARTLE RESPONSE [None]
  - PANIC DISORDER [None]
